FAERS Safety Report 5141277-7 (Version None)
Quarter: 2006Q4

REPORT INFORMATION
  Report Type: 
  Country: None (occurrence: None)
  Receive Date: 20061101
  Receipt Date: 20061012
  Transmission Date: 20070319
  Serious: Yes (Other)
  Sender: FDA-Public Use
  Company Number: PHBS2006JP16027

PATIENT
  Age: 75 Year
  Sex: Female

DRUGS (12)
  1. FASTIC [Suspect]
     Indication: DIABETES MELLITUS
     Dosage: 270 MG/DAY
     Route: 048
     Dates: start: 20020911
  2. MAGMITT [Suspect]
     Dosage: 330 MG, TID
     Route: 048
     Dates: start: 20040218, end: 20040331
  3. MAGMITT [Suspect]
     Dosage: 330 MG, TID
     Route: 048
     Dates: start: 20060802, end: 20061004
  4. WARFARIN SODIUM [Concomitant]
     Dosage: 3 MG, UNK
     Dates: start: 20020710
  5. WARFARIN SODIUM [Concomitant]
     Dosage: 2 MG, UNK
     Dates: start: 20060920, end: 20061005
  6. WARFARIN SODIUM [Concomitant]
     Dosage: 1.5 MG, UNK
     Dates: start: 20061005, end: 20061006
  7. WARFARIN SODIUM [Concomitant]
     Dosage: 1 MG, UNK
     Dates: start: 20061008, end: 20061011
  8. WARFARIN SODIUM [Concomitant]
     Dosage: 1.5 MG, UNK
     Dates: start: 20061011, end: 20061014
  9. WARFARIN SODIUM [Concomitant]
     Dosage: 1.75 MG, UNK
     Dates: start: 20061014
  10. DIGOXIN [Concomitant]
     Dosage: 0.25 DF, UNK
  11. NITOROL [Concomitant]
     Dosage: 40 DF, UNK
  12. NORVASC [Concomitant]
     Dosage: 5 DF, UNK

REACTIONS (2)
  - INTERNATIONAL NORMALISED RATIO INCREASED [None]
  - PROTHROMBIN TIME PROLONGED [None]
